FAERS Safety Report 4277540-1 (Version None)
Quarter: 2004Q1

REPORT INFORMATION
  Report Type: 
  Country: None (occurrence: None)
  Receive Date: 20040121
  Receipt Date: 20040115
  Transmission Date: 20041129
  Serious: Yes (Death)
  Sender: FDA-Public Use
  Company Number: US-JNJFOC-20040102954

PATIENT
  Sex: Female

DRUGS (1)
  1. RISPERDAL [Suspect]

REACTIONS (1)
  - DEATH [None]
